FAERS Safety Report 9585888 (Version 1)
Quarter: 2013Q4

REPORT INFORMATION
  Report Type: Spontaneous
  Country: US (occurrence: None)
  Receive Date: 20131001
  Receipt Date: 20131001
  Transmission Date: 20140711
  Serious: Yes (Other)
  Sender: FDA-Public Use
  Company Number: 2013-US-001055

PATIENT
  Age: 53 Year
  Sex: Female

DRUGS (5)
  1. XYREM [Suspect]
     Indication: APNOEA
     Route: 048
     Dates: start: 20091124
  2. KLONOPIN (CLONAZEPAM) (TABLETS) [Concomitant]
  3. FENTANYL (FENTANYL) [Concomitant]
  4. DILAUDID (HYDROMORPHONE HYDROCHLORIDE) [Concomitant]
  5. ZANAFLEX (TIZANIDINE HYDROCHLORIDE) [Concomitant]

REACTIONS (3)
  - Drug tolerance [None]
  - Insomnia [None]
  - Fatigue [None]
